FAERS Safety Report 9603164 (Version 2)
Quarter: 2013Q4

REPORT INFORMATION
  Report Type: Report from Study
  Country: BR (occurrence: BR)
  Receive Date: 20131007
  Receipt Date: 20131104
  Transmission Date: 20140711
  Serious: Yes (Other)
  Sender: FDA-Public Use
  Company Number: PHHY2013BR109310

PATIENT
  Sex: Male

DRUGS (5)
  1. DIOVAN AMLO FIX [Suspect]
     Indication: HYPERTENSION
     Dosage: 1 DF, (320/5MG) DAILY
     Dates: start: 2004
  2. LOSARTAN [Suspect]
     Indication: HYPERTENSION
     Dosage: 2 DF (50MG), QD (IN THE MORNING)
     Route: 048
  3. CAPTOPRIL [Suspect]
     Indication: HYPERTENSION
     Dosage: 1 DF, DAILY (SOMETIMES)
     Route: 048
  4. ATENOLOL [Suspect]
     Indication: CARDIAC DISORDER
     Dosage: 1 DF (50MG), DAILY
     Route: 048
     Dates: start: 2004
  5. CAPTOPRIL [Suspect]
     Indication: BLOOD PRESSURE INCREASED
     Dosage: UNK UKN, UNK

REACTIONS (4)
  - Blood pressure fluctuation [Not Recovered/Not Resolved]
  - Local swelling [Not Recovered/Not Resolved]
  - Cough [Not Recovered/Not Resolved]
  - Drug ineffective [Unknown]
